FAERS Safety Report 23745477 (Version 1)
Quarter: 2024Q2

REPORT INFORMATION
  Report Type: Spontaneous
  Country: US (occurrence: US)
  Receive Date: 20240416
  Receipt Date: 20240416
  Transmission Date: 20240716
  Serious: No
  Sender: FDA-Public Use
  Company Number: US-TEVA-VS-3177004

PATIENT
  Sex: Female

DRUGS (1)
  1. AMOXAPINE [Suspect]
     Active Substance: AMOXAPINE
     Indication: Product used for unknown indication
     Route: 065

REACTIONS (2)
  - Adverse event [Unknown]
  - Gluten sensitivity [Unknown]
